FAERS Safety Report 6380414-3 (Version None)
Quarter: 2009Q3

REPORT INFORMATION
  Report Type: 
  Country: None (occurrence: None)
  Receive Date: 20090929
  Receipt Date: 20090917
  Transmission Date: 20100115
  Serious: Yes (Other)
  Sender: FDA-Public Use
  Company Number: PHEH2009US11151

PATIENT
  Sex: Female

DRUGS (3)
  1. GENTEAL GEL (NVO) [Suspect]
     Dosage: UNK, UNK
  2. AZOPT [Concomitant]
     Dosage: UNK, UNK
  3. EYE VITAMINS [Concomitant]

REACTIONS (2)
  - CATARACT [None]
  - VISION BLURRED [None]
